FAERS Safety Report 6865592-1 (Version None)
Quarter: 2010Q3

REPORT INFORMATION
  Report Type: 
  Country: None (occurrence: None)
  Receive Date: 20100721
  Receipt Date: 20080424
  Transmission Date: 20110219
  Serious: No
  Sender: FDA-Public Use
  Company Number: US-PFIZER INC-2008037230

PATIENT
  Sex: Female
  Weight: 46.4 kg

DRUGS (1)
  1. CHANTIX [Suspect]
     Indication: SMOKING CESSATION THERAPY
     Dates: start: 20080416, end: 20080423

REACTIONS (3)
  - FEELING ABNORMAL [None]
  - NAUSEA [None]
  - PAIN [None]
